FAERS Safety Report 5004982-9 (Version None)
Quarter: 2006Q1

REPORT INFORMATION
  Report Type: 
  Country: None (occurrence: None)
  Receive Date: 20060321
  Receipt Date: 20051121
  Transmission Date: 20060701
  Serious: No
  Sender: FDA-Public Use
  Company Number: YPA20050488

PATIENT
  Age: 38 Year
  Sex: Female
  Weight: 95.5 kg

DRUGS (12)
  1. VESICARE [Suspect]
     Indication: HYPERTONIC BLADDER
     Dosage: 5 MG, UID/OD, ORAL
     Route: 048
     Dates: start: 20050914
  2. ZOCOR [Concomitant]
  3. SEROQUEL [Concomitant]
  4. TOPAMAX [Concomitant]
  5. KLONOPIN [Concomitant]
  6. EFFEXOR XR [Concomitant]
  7. ZANAFLEX [Concomitant]
  8. ULTRAM [Concomitant]
  9. VISTARIL (HYDROXYZINE EMBONATE) [Concomitant]
  10. NORCO (HYDROCODONE BITARTRATE) [Concomitant]
  11. DYAZIDE [Concomitant]
  12. EPIDURAL SHOT INJECTION [Concomitant]

REACTIONS (1)
  - OEDEMA PERIPHERAL [None]
